FAERS Safety Report 9176538 (Version 1)
Quarter: 2013Q1

REPORT INFORMATION
  Report Type: Spontaneous
  Country: US (occurrence: None)
  Receive Date: 20130320
  Receipt Date: 20130320
  Transmission Date: 20140127
  Serious: Yes (Other)
  Sender: FDA-Public Use
  Company Number: None

PATIENT
  Age: 66 Year
  Sex: Female
  Weight: 47.5 kg

DRUGS (1)
  1. PAZOPANIB [Suspect]
     Route: 048
     Dates: start: 20130115, end: 20130315

REACTIONS (1)
  - Acute hepatic failure [None]
